FAERS Safety Report 7948503-7 (Version None)
Quarter: 2011Q4

REPORT INFORMATION
  Report Type: 
  Country: None (occurrence: None)
  Receive Date: 20111123
  Receipt Date: 20111111
  Transmission Date: 20120403
  Serious: Yes (Hospitalization)
  Sender: FDA-Public Use
  Company Number: 2011CP000184

PATIENT
  Age: 42 Year
  Sex: Female

DRUGS (2)
  1. AUGMENTIN '125' [Suspect]
     Indication: PROPHYLAXIS
     Dosage: 1.2 GRAM;IV
     Route: 042
  2. ACETAMINOPHEN [Suspect]
     Indication: PERIOPERATIVE ANALGESIA
     Dosage: 1 GRAM;IV
     Route: 042

REACTIONS (1)
  - ANAPHYLACTIC REACTION [None]
